FAERS Safety Report 6665041-2 (Version None)
Quarter: 2010Q2

REPORT INFORMATION
  Report Type: 
  Country: None (occurrence: None)
  Receive Date: 20100402
  Receipt Date: 20100326
  Transmission Date: 20101027
  Serious: No
  Sender: FDA-Public Use
  Company Number: US-BIOGENIDEC-2010BI010108

PATIENT
  Age: 61 Year
  Sex: Female

DRUGS (1)
  1. AVONEX [Suspect]
     Indication: MULTIPLE SCLEROSIS
     Route: 030
     Dates: start: 20031004

REACTIONS (5)
  - ASTHENIA [None]
  - GAIT DISTURBANCE [None]
  - INJECTION SITE PAIN [None]
  - MOTOR DYSFUNCTION [None]
  - OEDEMA PERIPHERAL [None]
